FAERS Safety Report 7400034-9 (Version None)
Quarter: 2011Q2

REPORT INFORMATION
  Report Type: 
  Country: None (occurrence: None)
  Receive Date: 20110407
  Receipt Date: 20110405
  Transmission Date: 20111010
  Serious: Yes (Other)
  Sender: FDA-Public Use
  Company Number: US-ASTRAZENECA-2009UW10088

PATIENT
  Age: 54 Year
  Sex: Female
  Weight: 99.3 kg

DRUGS (6)
  1. ACTOS [Concomitant]
     Indication: BLOOD GLUCOSE ABNORMAL
     Dates: start: 20070823
  2. DEPAKOTE [Concomitant]
     Dates: start: 20060424
  3. NEURONTIN [Concomitant]
     Indication: PAIN
     Dates: start: 20110328
  4. SEROQUEL [Suspect]
     Route: 048
     Dates: start: 20011105
  5. ELAVIL [Concomitant]
     Dates: start: 20060424
  6. EFFEXOR [Concomitant]
     Dates: start: 20060424

REACTIONS (2)
  - TYPE 2 DIABETES MELLITUS [None]
  - NEUROPATHY PERIPHERAL [None]
